FAERS Safety Report 8375642 (Version 2)
Quarter: 2013Q1

REPORT INFORMATION
  Report Type: Spontaneous
  Country: US (occurrence: US)
  Receive Date: 20120129
  Receipt Date: 20130129
  Transmission Date: 20140127
  Serious: No
  Sender: FDA-Public Use
  Company Number: US-ABBOTT-11P-163-0884175-00

PATIENT
  Sex: Male

DRUGS (2)
  1. HUMIRA 40 MG/ 0.8 ML PRE-FILLED SYRINGE [Suspect]
     Indication: PRODUCT USED FOR UNKNOWN INDICATION
  2. METHOTREXATE [Concomitant]
     Indication: PRODUCT USED FOR UNKNOWN INDICATION

REACTIONS (10)
  - Lung infection [Unknown]
  - Pain [Unknown]
  - Generalised oedema [Unknown]
  - Malaise [Unknown]
  - Weight increased [Unknown]
  - Oedema peripheral [Unknown]
  - Local swelling [None]
  - Disorientation [Unknown]
  - Arthralgia [Unknown]
  - Joint stiffness [Unknown]
